FAERS Safety Report 14280273 (Version 1)
Quarter: 2017Q4

REPORT INFORMATION
  Report Type: Report from Study
  Country: US (occurrence: US)
  Receive Date: 20171213
  Receipt Date: 20171213
  Transmission Date: 20180321
  Serious: Yes (Other)
  Sender: FDA-Public Use
  Company Number: US-SHIRE-US201731620

PATIENT
  Age: 74 Year
  Sex: Male

DRUGS (2)
  1. GATTEX [Suspect]
     Active Substance: TEDUGLUTIDE\WATER
     Indication: SHORT-BOWEL SYNDROME
     Dosage: 0.35 UNIT DOSE, 1X/DAY:QD
     Route: 058
     Dates: start: 20171121, end: 20171127
  2. GATTEX [Suspect]
     Active Substance: TEDUGLUTIDE\WATER
     Dosage: 0.25 UNIT DOSE, 1X/DAY:QD
     Route: 058
     Dates: start: 20171128

REACTIONS (2)
  - Generalised oedema [Not Recovered/Not Resolved]
  - Inappropriate schedule of drug administration [Recovered/Resolved]

NARRATIVE: CASE EVENT DATE: 20171122
